FAERS Safety Report 4647258-1 (Version None)
Quarter: 2005Q2

REPORT INFORMATION
  Report Type: 
  Country: None (occurrence: None)
  Receive Date: 20050428
  Receipt Date: 20050119
  Transmission Date: 20051028
  Serious: Yes (Hospitalization)
  Sender: FDA-Public Use
  Company Number: 200510440US

PATIENT
  Sex: Male

DRUGS (1)
  1. KETEK [Suspect]

REACTIONS (5)
  - ANAPHYLACTIC SHOCK [None]
  - ASTHMA [None]
  - DYSPNOEA [None]
  - HAEMOGLOBIN DECREASED [None]
  - LETHARGY [None]
